FAERS Safety Report 13412365 (Version 25)
Quarter: 2018Q2

REPORT INFORMATION
  Report Type: Spontaneous
  Country: US (occurrence: CA)
  Receive Date: 20170406
  Receipt Date: 20180625
  Transmission Date: 20180711
  Serious: Yes (Other)
  Sender: FDA-Public Use
  Company Number: CA-009507513-1602CAN004910

PATIENT
  Age: 69 Year
  Sex: Female
  Weight: 59.5 kg

DRUGS (12)
  1. KEYTRUDA [Suspect]
     Active Substance: PEMBROLIZUMAB
     Dosage: 128 MG, Q3W
     Route: 042
     Dates: start: 2016, end: 2016
  2. KEYTRUDA [Suspect]
     Active Substance: PEMBROLIZUMAB
     Dosage: 128 MG, Q3W
     Route: 042
     Dates: start: 2017, end: 2017
  3. KEYTRUDA [Suspect]
     Active Substance: PEMBROLIZUMAB
     Dosage: 128 MG, Q3W
     Route: 042
     Dates: start: 2016, end: 2016
  4. KEYTRUDA [Suspect]
     Active Substance: PEMBROLIZUMAB
     Dosage: 120 MG, Q3W
     Route: 042
     Dates: start: 20150626
  5. KEYTRUDA [Suspect]
     Active Substance: PEMBROLIZUMAB
     Dosage: 128 MG, Q3W
     Route: 042
     Dates: start: 20171229
  6. KEYTRUDA [Suspect]
     Active Substance: PEMBROLIZUMAB
     Dosage: 128 MG, Q3W
     Route: 042
     Dates: start: 2017, end: 2017
  7. KEYTRUDA [Suspect]
     Active Substance: PEMBROLIZUMAB
     Dosage: 128MG, Q3W
     Route: 042
  8. KEYTRUDA [Suspect]
     Active Substance: PEMBROLIZUMAB
     Indication: METASTATIC MALIGNANT MELANOMA
     Dosage: 128MG, Q3W
     Route: 042
     Dates: start: 20150626, end: 2016
  9. KEYTRUDA [Suspect]
     Active Substance: PEMBROLIZUMAB
     Dosage: 128MG, Q3W
     Route: 042
     Dates: start: 20150626
  10. KEYTRUDA [Suspect]
     Active Substance: PEMBROLIZUMAB
     Dosage: 128 MG, Q3W
     Route: 042
     Dates: start: 20160626, end: 2016
  11. KEYTRUDA [Suspect]
     Active Substance: PEMBROLIZUMAB
     Dosage: 128 MG, Q3W
     Route: 042
     Dates: start: 20170728, end: 20170817
  12. KEYTRUDA [Suspect]
     Active Substance: PEMBROLIZUMAB
     Dosage: 128MG, Q3W
     Route: 042
     Dates: start: 20150626, end: 2015

REACTIONS (40)
  - Brain neoplasm [Unknown]
  - Blood pressure measurement [Unknown]
  - Blood pressure fluctuation [Unknown]
  - Dry mouth [Unknown]
  - Weight fluctuation [Unknown]
  - Blood pressure fluctuation [Unknown]
  - Vital functions abnormal [Unknown]
  - Rhinorrhoea [Unknown]
  - Constipation [Not Recovered/Not Resolved]
  - Constipation [Unknown]
  - Pyrexia [Unknown]
  - Mass [Unknown]
  - Vital functions abnormal [Unknown]
  - Hypertension [Unknown]
  - Dry mouth [Unknown]
  - Oropharyngeal pain [Unknown]
  - Nasopharyngitis [Unknown]
  - Hypertension [Unknown]
  - Influenza [Unknown]
  - Dry mouth [Unknown]
  - Constipation [Unknown]
  - Dyspnoea [Unknown]
  - Blood pressure increased [Unknown]
  - Dry mouth [Unknown]
  - Dry mouth [Unknown]
  - Constipation [Unknown]
  - Vascular fragility [Unknown]
  - Blood pressure fluctuation [Recovering/Resolving]
  - Blood pressure fluctuation [Unknown]
  - Vital functions abnormal [Unknown]
  - Productive cough [Recovered/Resolved]
  - Constipation [Unknown]
  - Vein rupture [Unknown]
  - Blood pressure fluctuation [Unknown]
  - Vital functions abnormal [Recovering/Resolving]
  - Vital functions abnormal [Unknown]
  - Productive cough [Recovered/Resolved]
  - Dry mouth [Unknown]
  - Constipation [Unknown]
  - Constipation [Unknown]

NARRATIVE: CASE EVENT DATE: 2016
